FAERS Safety Report 13882797 (Version 1)
Quarter: 2017Q3

REPORT INFORMATION
  Report Type: Spontaneous
  Country: US (occurrence: US)
  Receive Date: 20170818
  Receipt Date: 20170818
  Transmission Date: 20171127
  Serious: No
  Sender: FDA-Public Use
  Company Number: US-ASTRAZENECA-2017SE82095

PATIENT
  Age: 46 Year
  Sex: Female
  Weight: 62.6 kg

DRUGS (4)
  1. ATACAND [Suspect]
     Active Substance: CANDESARTAN CILEXETIL
     Indication: BLOOD PRESSURE AMBULATORY INCREASED
     Route: 048
  2. ATACAND [Suspect]
     Active Substance: CANDESARTAN CILEXETIL
     Indication: BLOOD PRESSURE AMBULATORY INCREASED
     Dosage: GENERIC, UNKNOWN
     Route: 065
  3. ATACAND [Suspect]
     Active Substance: CANDESARTAN CILEXETIL
     Indication: BLOOD PRESSURE AMBULATORY INCREASED
     Dosage: 16 MG
     Route: 048
  4. ATACAND [Suspect]
     Active Substance: CANDESARTAN CILEXETIL
     Indication: BLOOD PRESSURE AMBULATORY INCREASED
     Route: 048
     Dates: start: 2002

REACTIONS (6)
  - Cough [Unknown]
  - Intentional product misuse [Unknown]
  - Dizziness [Unknown]
  - Off label use [Unknown]
  - Blood pressure increased [Unknown]
  - Drug ineffective [Unknown]

NARRATIVE: CASE EVENT DATE: 2002
